FAERS Safety Report 15436080 (Version 1)
Quarter: 2018Q3

REPORT INFORMATION
  Report Type: Spontaneous
  Country: US (occurrence: US)
  Receive Date: 20180927
  Receipt Date: 20180927
  Transmission Date: 20181010
  Serious: Yes (Other)
  Sender: FDA-Public Use
  Company Number: US-EAGLE PHARMACEUTICALS, INC.-US-2018EAG000070

PATIENT

DRUGS (3)
  1. BENDEKA [Suspect]
     Active Substance: BENDAMUSTINE HYDROCHLORIDE
     Indication: NON-HODGKIN^S LYMPHOMA
     Dosage: 154 MG (CYCLE 1), VIA CENTRAL PORT OVER 10 MINUTES, 50 ML DILUENT
     Route: 042
     Dates: start: 201807
  2. RITUXAN [Concomitant]
     Active Substance: RITUXIMAB
     Indication: NON-HODGKIN^S LYMPHOMA
     Dosage: UNK, VIA CENTRAL PORT
     Route: 042
  3. BENDEKA [Suspect]
     Active Substance: BENDAMUSTINE HYDROCHLORIDE
     Dosage: 154 MG,(CYCLE 2) OVER 10 MINUTES, 50 ML DILUENT
     Route: 042
     Dates: start: 20180820

REACTIONS (2)
  - Drug ineffective [Unknown]
  - Injection site phlebitis [Unknown]

NARRATIVE: CASE EVENT DATE: 201806
